FAERS Safety Report 8128870-4 (Version None)
Quarter: 2012Q1

REPORT INFORMATION
  Report Type: 
  Country: None (occurrence: None)
  Receive Date: 20120210
  Receipt Date: 20111214
  Transmission Date: 20120608
  Serious: Yes (Other)
  Sender: FDA-Public Use
  Company Number: US-BRISTOL-MYERS SQUIBB COMPANY-15674724

PATIENT
  Age: 76 Year
  Sex: Female

DRUGS (9)
  1. ORENCIA [Suspect]
     Indication: RHEUMATOID ARTHRITIS
     Dosage: LAST INFUSION ON 10FEB2011
     Route: 042
     Dates: start: 20080628
  2. ALBUTEROL [Concomitant]
  3. ASMANEX TWISTHALER [Concomitant]
  4. CALCIUM + VITAMIN D [Concomitant]
  5. ACETAMINOPHEN [Concomitant]
  6. SIMVASTATIN [Concomitant]
  7. FISH OIL [Concomitant]
  8. LEVOTHROID [Concomitant]
  9. VITAMIN E [Concomitant]

REACTIONS (1)
  - TRANSITIONAL CELL CARCINOMA [None]
